FAERS Safety Report 12803694 (Version 1)
Quarter: 2016Q4

REPORT INFORMATION
  Report Type: Spontaneous
  Country: US (occurrence: US)
  Receive Date: 20161003
  Receipt Date: 20161003
  Transmission Date: 20170207
  Serious: Yes (Other)
  Sender: FDA-Public Use
  Company Number: US-GLAXOSMITHKLINE-US2016143535

PATIENT
  Age: 88 Year
  Sex: Female

DRUGS (1)
  1. MINERAL ICE PAIN RELIEVING [Suspect]
     Active Substance: MENTHOL
     Indication: PAIN
     Dosage: UNK
     Route: 061
     Dates: start: 20160927

REACTIONS (3)
  - Accidental device ingestion [Unknown]
  - Accidental exposure to product [Unknown]
  - Expired product administered [Unknown]
